FAERS Safety Report 25509555 (Version 1)
Quarter: 2025Q3

REPORT INFORMATION
  Report Type: Spontaneous
  Country: EU (occurrence: EU)
  Receive Date: 20250703
  Receipt Date: 20250703
  Transmission Date: 20251021
  Serious: Yes (Hospitalization, Other)
  Sender: CADILA
  Company Number: EU-CPL-005464

PATIENT
  Age: 56 Year
  Sex: Female

DRUGS (5)
  1. FOLIC ACID [Suspect]
     Active Substance: FOLIC ACID
     Indication: Product used for unknown indication
  2. FLUOXETINE [Concomitant]
     Active Substance: FLUOXETINE HYDROCHLORIDE
     Indication: Depression
     Dosage: DOSE WAS INCREASED FROM 20 TO 40 MG PER DAY
  3. BISOPROLOL FUMARATE [Concomitant]
     Active Substance: BISOPROLOL FUMARATE
     Indication: Hypertension
  4. OLMESARTAN MEDOXOMIL [Concomitant]
     Active Substance: OLMESARTAN MEDOXOMIL
     Indication: Hypertension
  5. ASPIRIN [Concomitant]
     Active Substance: ASPIRIN

REACTIONS (5)
  - Vitamin B12 deficiency [Recovering/Resolving]
  - Blood folate increased [Unknown]
  - Paradoxical drug reaction [Unknown]
  - Myelopathy [Unknown]
  - Prescribed overdose [Unknown]
